FAERS Safety Report 9643337 (Version 2)
Quarter: 2014Q1

REPORT INFORMATION
  Report Type: Report from Study
  Country: US (occurrence: US)
  Receive Date: 20131024
  Receipt Date: 20140313
  Transmission Date: 20141002
  Serious: Yes (Other)
  Sender: FDA-Public Use
  Company Number: US-ABBVIE-13P-163-1157568-00

PATIENT
  Age: 55 Year
  Sex: Female
  Weight: 63.56 kg

DRUGS (8)
  1. HUMIRA [Suspect]
     Indication: CROHN^S DISEASE
     Dates: start: 2011, end: 2011
  2. HUMIRA [Suspect]
     Dates: end: 201310
  3. HUMIRA [Suspect]
  4. PROZAC [Concomitant]
     Indication: STRESS
  5. AMLODIPINE [Concomitant]
     Indication: MIGRAINE
  6. IMITREX [Concomitant]
     Indication: MIGRAINE
  7. ESTROGEL [Concomitant]
     Indication: HORMONE REPLACEMENT THERAPY
  8. PROGESTERONE [Concomitant]
     Indication: HORMONE REPLACEMENT THERAPY

REACTIONS (9)
  - VIth nerve paralysis [Recovering/Resolving]
  - Diplopia [Recovering/Resolving]
  - Diplopia [Recovering/Resolving]
  - Neuropathy peripheral [Recovering/Resolving]
  - Crohn^s disease [Recovering/Resolving]
  - Clostridium difficile infection [Recovering/Resolving]
  - Glucose tolerance impaired [Unknown]
  - Vision blurred [Unknown]
  - Type 2 diabetes mellitus [Unknown]
